FAERS Safety Report 20219475 (Version 4)
Quarter: 2022Q2

REPORT INFORMATION
  Report Type: Report from Study
  Country: CA (occurrence: CA)
  Receive Date: 20211222
  Receipt Date: 20220623
  Transmission Date: 20220721
  Serious: Yes (Other)
  Sender: FDA-Public Use
  Company Number: CA-ABBVIE-21K-028-4202247-00

PATIENT
  Sex: Female

DRUGS (1)
  1. RINVOQ [Suspect]
     Active Substance: UPADACITINIB
     Indication: Rheumatoid arthritis
     Route: 048
     Dates: start: 20210629, end: 20220615

REACTIONS (23)
  - Suicide attempt [Unknown]
  - Suicidal ideation [Recovered/Resolved]
  - Pain [Not Recovered/Not Resolved]
  - Grief reaction [Unknown]
  - Depression [Not Recovered/Not Resolved]
  - Neuralgia [Unknown]
  - Crying [Unknown]
  - Feeling hot [Unknown]
  - Fall [Not Recovered/Not Resolved]
  - Joint lock [Unknown]
  - Dysstasia [Unknown]
  - Muscle spasms [Unknown]
  - Arthropathy [Unknown]
  - Hypoaesthesia [Unknown]
  - Feeling abnormal [Unknown]
  - Hypertension [Unknown]
  - Blood urine present [Unknown]
  - Balance disorder [Unknown]
  - Aortic disorder [Unknown]
  - Fear [Unknown]
  - Cardiac disorder [Unknown]
  - Anxiety [Unknown]
  - Therapeutic product effect decreased [Not Recovered/Not Resolved]

NARRATIVE: CASE EVENT DATE: 20210101
